FAERS Safety Report 21088567 (Version 2)
Quarter: 2022Q3

REPORT INFORMATION
  Report Type: Spontaneous
  Country: GB (occurrence: GB)
  Receive Date: 20220715
  Receipt Date: 20220727
  Transmission Date: 20221026
  Serious: Yes (Hospitalization)
  Sender: FDA-Public Use
  Company Number: GB-VERTEX PHARMACEUTICALS-2022-009456

PATIENT
  Age: 9 Year
  Sex: Male
  Weight: 30 kg

DRUGS (12)
  1. ELEXACAFTOR\IVACAFTOR\TEZACAFTOR [Suspect]
     Active Substance: ELEXACAFTOR\IVACAFTOR\TEZACAFTOR
     Indication: Cystic fibrosis
     Dosage: TWO TABLETS (IVA 75 MG/TEZA 50 MG/ELEXA 100 MG) IN AM
     Route: 048
     Dates: start: 20220411, end: 2022
  2. ELEXACAFTOR\IVACAFTOR\TEZACAFTOR [Suspect]
     Active Substance: ELEXACAFTOR\IVACAFTOR\TEZACAFTOR
     Dosage: REDUCED DOSE: 1 ORANGE TAB IN THE MORNING
     Route: 048
     Dates: start: 2022
  3. KALYDECO [Suspect]
     Active Substance: IVACAFTOR
     Indication: Cystic fibrosis
     Dosage: 1 TABLET IN PM
     Route: 048
     Dates: start: 20220411
  4. CREON [Concomitant]
     Active Substance: PANCRELIPASE AMYLASE\PANCRELIPASE LIPASE\PANCRELIPASE PROTEASE
     Dosage: 10,000 WITH MEALS AND SNACKS, APPROX 19-21 PER DAY (6250-6900 IU)
  5. ALBUTEROL [Concomitant]
     Active Substance: ALBUTEROL
     Dosage: 2 PUFFS TWICE DAILY
  6. TOBRAMYCIN [Concomitant]
     Active Substance: TOBRAMYCIN
  7. SODIUM CHLORIDE [Concomitant]
     Active Substance: SODIUM CHLORIDE
     Dosage: 4 ML NEBULISED TWICE DAILY
  8. PROMIXIN [Concomitant]
     Dosage: 1 MEGA UNIT TWICE DAILY
  9. PULMOZYME [Concomitant]
     Active Substance: DORNASE ALFA
  10. TOBRAMYCIN [Concomitant]
     Active Substance: TOBRAMYCIN
     Dosage: BID
  11. DEOXYRIBONUCLEASE HUMAN [Concomitant]
     Dosage: 2.5 MG ONCE DAILY
  12. OMEPRAZOLE [Concomitant]
     Active Substance: OMEPRAZOLE
     Dosage: 10 MILLIGRAM IN AM; 20 MILLIGRAM IN PM

REACTIONS (7)
  - Cystic fibrosis respiratory infection suppression [Recovered/Resolved]
  - Stress [Recovered/Resolved]
  - Eating disorder [Recovered/Resolved]
  - Gastroenteritis viral [Recovered/Resolved]
  - Depressed mood [Recovered/Resolved]
  - Hallucination, auditory [Recovered/Resolved]
  - Weight decreased [Recovering/Resolving]

NARRATIVE: CASE EVENT DATE: 20220501
